FAERS Safety Report 8805750 (Version 2)
Quarter: 2015Q2

REPORT INFORMATION
  Report Type: Report from Study
  Country: US (occurrence: US)
  Receive Date: 20120924
  Receipt Date: 20150625
  Transmission Date: 20150821
  Serious: Yes (Death)
  Sender: FDA-Public Use
  Company Number: US-ROCHE-1124842

PATIENT
  Sex: Female

DRUGS (10)
  1. PROTONIX (UNITED STATES) [Concomitant]
     Route: 065
  2. XELODA [Suspect]
     Active Substance: CAPECITABINE
     Indication: PRODUCT USED FOR UNKNOWN INDICATION
     Route: 048
  3. DECADRON [Concomitant]
     Active Substance: DEXAMETHASONE
     Route: 042
  4. CYTOXAN [Concomitant]
     Active Substance: CYCLOPHOSPHAMIDE
     Route: 065
  5. AVASTIN [Suspect]
     Active Substance: BEVACIZUMAB
     Indication: BREAST CANCER FEMALE
     Route: 042
     Dates: start: 200506
  6. AREDIA [Concomitant]
     Active Substance: PAMIDRONATE DISODIUM
     Route: 065
  7. ZOFRAN [Concomitant]
     Active Substance: ONDANSETRON HYDROCHLORIDE
     Route: 065
  8. ZOMETA [Concomitant]
     Active Substance: ZOLEDRONIC ACID
     Route: 065
  9. ABRAXANE [Suspect]
     Active Substance: PACLITAXEL
     Indication: PRODUCT USED FOR UNKNOWN INDICATION
     Route: 065
  10. PROCRIT [Concomitant]
     Active Substance: ERYTHROPOIETIN

REACTIONS (21)
  - Arthralgia [Unknown]
  - Dysphagia [Unknown]
  - Cough [Unknown]
  - Asthenia [Unknown]
  - Skin reaction [Unknown]
  - Oropharyngeal pain [Unknown]
  - Malaise [Unknown]
  - Death [Fatal]
  - Laryngitis [Unknown]
  - Anaemia [Unknown]
  - Neck pain [Unknown]
  - Myalgia [Unknown]
  - Decreased appetite [Unknown]
  - Off label use [Unknown]
  - Blood cholesterol increased [Unknown]
  - Alopecia [Unknown]
  - Musculoskeletal pain [Unknown]
  - Disease progression [Unknown]
  - Pain in extremity [Unknown]
  - Nausea [Unknown]
  - Dysphonia [Unknown]
